FAERS Safety Report 21663940 (Version 4)
Quarter: 2023Q2

REPORT INFORMATION
  Report Type: Report from Study
  Country: BR (occurrence: BR)
  Receive Date: 20221130
  Receipt Date: 20230427
  Transmission Date: 20230721
  Serious: Yes (Other)
  Sender: FDA-Public Use
  Company Number: BR-JNJFOC-20221153005

PATIENT
  Age: 17 Year
  Sex: Female
  Weight: 52 kg

DRUGS (8)
  1. INFLIXIMAB [Suspect]
     Active Substance: INFLIXIMAB
     Indication: Crohn^s disease
     Route: 041
     Dates: start: 20201203
  2. INFLIXIMAB [Suspect]
     Active Substance: INFLIXIMAB
     Route: 041
  3. INFLIXIMAB [Suspect]
     Active Substance: INFLIXIMAB
     Route: 041
     Dates: start: 20210118
  4. INFLIXIMAB [Suspect]
     Active Substance: INFLIXIMAB
     Indication: Crohn^s disease
     Route: 041
     Dates: start: 20210118
  5. REMICADE [Suspect]
     Active Substance: INFLIXIMAB
     Indication: Crohn^s disease
     Route: 041
     Dates: start: 20201203
  6. REMICADE [Suspect]
     Active Substance: INFLIXIMAB
     Route: 041
  7. REMICADE [Suspect]
     Active Substance: INFLIXIMAB
     Route: 041
     Dates: start: 20210118
  8. CLAVULANATE POTASSIUM [Suspect]
     Active Substance: CLAVULANATE POTASSIUM
     Indication: Oropharyngeal pain
     Route: 065

REACTIONS (5)
  - Crohn^s disease [Unknown]
  - Oropharyngeal pain [Unknown]
  - Infectious mononucleosis [Unknown]
  - Drug hypersensitivity [Unknown]
  - Off label use [Unknown]
